FAERS Safety Report 9120542 (Version 1)
Quarter: 2013Q1

REPORT INFORMATION
  Report Type: Spontaneous
  Country: DE (occurrence: CA)
  Receive Date: 20130226
  Receipt Date: 20130226
  Transmission Date: 20140127
  Serious: Yes (Death)
  Sender: FDA-Public Use
  Company Number: CA-FRI-1000042947

PATIENT
  Sex: Female

DRUGS (1)
  1. ROFLUMILAST [Suspect]

REACTIONS (1)
  - Death [Fatal]
